FAERS Safety Report 6972436-6 (Version None)
Quarter: 2010Q3

REPORT INFORMATION
  Report Type: 
  Country: None (occurrence: None)
  Receive Date: 20100908
  Receipt Date: 20100908
  Transmission Date: 20110219
  Serious: No
  Sender: FDA-Public Use
  Company Number: None

PATIENT
  Sex: Female

DRUGS (1)
  1. DEPAKOTE ER [Suspect]
     Indication: EPILEPSY
     Dosage: 1000 MG
     Dates: start: 20100301

REACTIONS (3)
  - DIZZINESS [None]
  - PRODUCT SUBSTITUTION ISSUE [None]
  - TREMOR [None]
